FAERS Safety Report 6765588-4 (Version None)
Quarter: 2010Q2

REPORT INFORMATION
  Report Type: 
  Country: None (occurrence: None)
  Receive Date: 20100609
  Receipt Date: 20100526
  Transmission Date: 20101027
  Serious: Yes (Hospitalization, Other)
  Sender: FDA-Public Use
  Company Number: 7006329

PATIENT
  Age: 38 Year
  Sex: Female

DRUGS (2)
  1. REBIF [Suspect]
     Indication: DRUG USE FOR UNKNOWN INDICATION
     Dosage: 44 MCG, 3 IN 1 WK, SUBCUTANEOUS
     Route: 058
     Dates: start: 20060113
  2. SOLU-MEDROL [Concomitant]

REACTIONS (6)
  - HAEMANGIOMA OF LIVER [None]
  - INJECTION SITE PAIN [None]
  - MICTURITION URGENCY [None]
  - PAIN [None]
  - SCAR [None]
  - UTERINE LEIOMYOMA [None]
